FAERS Safety Report 12398648 (Version 2)
Quarter: 2016Q2

REPORT INFORMATION
  Report Type: Spontaneous
  Country: US (occurrence: US)
  Receive Date: 20160524
  Receipt Date: 20160530
  Transmission Date: 20160815
  Serious: Yes (Life-Threatening, Hospitalization, Other)
  Sender: FDA-Public Use
  Company Number: US-PFIZER INC-2016272990

PATIENT
  Age: 53 Year
  Sex: Female

DRUGS (4)
  1. TENORMIN [Suspect]
     Active Substance: ATENOLOL
     Indication: HYPERTENSION
     Dosage: UNK
     Route: 048
     Dates: start: 198507
  2. TENORMIN [Suspect]
     Active Substance: ATENOLOL
     Indication: TACHYCARDIA
     Dosage: 37.5 MG, DAILY
     Route: 048
     Dates: start: 201506
  3. TENORMIN [Suspect]
     Active Substance: ATENOLOL
     Dosage: 50 MG TABLET AND BREAK IT INTO 4 PIECES, 10 MG THREE TIMES A DAY AT 7:30 AM, 3:30 PM AND 11:30 PM
     Route: 048
  4. TENORMIN [Suspect]
     Active Substance: ATENOLOL
     Dosage: 12.5 MG, 2X/DAY
     Route: 048
     Dates: start: 201506, end: 201508

REACTIONS (20)
  - Hypermetabolism [Unknown]
  - Anxiety [Unknown]
  - Weight decreased [Unknown]
  - Thyroid cancer [Unknown]
  - Intentional product misuse [Unknown]
  - Abnormal loss of weight [Unknown]
  - Dizziness [Unknown]
  - Blood thyroid stimulating hormone increased [Unknown]
  - Hypertensive crisis [Unknown]
  - Adrenal adenoma [Unknown]
  - Thyrotoxic crisis [Unknown]
  - Thyroxine increased [Unknown]
  - Metanephrine urine increased [Unknown]
  - Hyperthyroidism [Unknown]
  - Gait disturbance [Unknown]
  - Adrenal gland cancer [Unknown]
  - Thyrotoxic crisis [Not Recovered/Not Resolved]
  - Blood glucose decreased [Unknown]
  - Drug dose omission [Unknown]
  - Thyroid mass [Unknown]

NARRATIVE: CASE EVENT DATE: 2010
